FAERS Safety Report 5852469-3 (Version None)
Quarter: 2008Q3

REPORT INFORMATION
  Report Type: 
  Country: None (occurrence: None)
  Receive Date: 20080820
  Receipt Date: 20080820
  Transmission Date: 20090109
  Serious: No
  Sender: FDA-Public Use
  Company Number: None

PATIENT
  Age: 8 Year
  Sex: Male

DRUGS (1)
  1. LANTUS [Suspect]
     Indication: DIABETES MELLITUS
     Dosage: INJECT ONE AND ONE-HALF (1 + 1/2) UNITS UNDER THE SKIN DAILY AT BEDTIME
     Dates: start: 20070101

REACTIONS (1)
  - BLOOD GLUCOSE INCREASED [None]
